FAERS Safety Report 16817853 (Version 1)
Quarter: 2019Q3

REPORT INFORMATION
  Report Type: Spontaneous
  Country: US (occurrence: US)
  Receive Date: 20190917
  Receipt Date: 20190917
  Transmission Date: 20191005
  Serious: No
  Sender: FDA-Public Use
  Company Number: US-GLAXOSMITHKLINE-US2019164460

PATIENT
  Age: 81 Year
  Sex: Male

DRUGS (1)
  1. VOLTAREN (DICLOFENAC DIETHYLAMMONIUM SALT) GEL [Suspect]
     Active Substance: DICLOFENAC DIETHYLAMINE
     Indication: SPONDYLITIS
     Dosage: UNK

REACTIONS (4)
  - Product administered at inappropriate site [Unknown]
  - Product use in unapproved indication [Unknown]
  - Expired product administered [Unknown]
  - Drug effective for unapproved indication [Unknown]
